FAERS Safety Report 15555263 (Version 2)
Quarter: 2021Q2

REPORT INFORMATION
  Report Type: Spontaneous
  Country: US (occurrence: US)
  Receive Date: 20181026
  Receipt Date: 20210517
  Transmission Date: 20210716
  Serious: No
  Sender: FDA-Public Use
  Company Number: US-BIOGEN-2018BI00649813

PATIENT
  Sex: Female

DRUGS (1)
  1. SPINRAZA [Suspect]
     Active Substance: NUSINERSEN
     Indication: SPINAL MUSCULAR ATROPHY
     Dosage: RECEIVED 9 INJECTIONS OF SPINRAZA BETWEEN 7/19/2018 AND 6/3/2020
     Route: 050
     Dates: start: 20180719, end: 20200603

REACTIONS (1)
  - Drug ineffective [Not Recovered/Not Resolved]
